FAERS Safety Report 10936279 (Version 1)
Quarter: 2015Q1

REPORT INFORMATION
  Report Type: Spontaneous
  Country: None (occurrence: None)
  Receive Date: 20150319
  Receipt Date: 20150319
  Transmission Date: 20150721
  Serious: No
  Sender: FDA-Public Use
  Company Number: None

PATIENT
  Sex: Male

DRUGS (1)
  1. HYDROMORPHONE [Suspect]
     Active Substance: HYDROMORPHONE

REACTIONS (5)
  - Product substitution issue [None]
  - Pain [None]
  - Abasia [None]
  - Mobility decreased [None]
  - Muscle spasms [None]
